FAERS Safety Report 8000262-8 (Version None)
Quarter: 2011Q4

REPORT INFORMATION
  Report Type: 
  Country: None (occurrence: None)
  Receive Date: 20111222
  Receipt Date: 20111212
  Transmission Date: 20120403
  Serious: Yes (Hospitalization, Other)
  Sender: FDA-Public Use
  Company Number: US-BAYER-2011-090844

PATIENT
  Age: 40 Year
  Sex: Female
  Weight: 98.866 kg

DRUGS (10)
  1. TRAZODONE HCL [Concomitant]
     Indication: INSOMNIA
  2. ATIVAN [Concomitant]
     Indication: INSOMNIA
     Dosage: UNK
     Dates: start: 20080101
  3. YASMIN [Suspect]
     Indication: PREMENSTRUAL SYNDROME
  4. TRAZODONE HCL [Concomitant]
     Indication: DEPRESSION
     Dosage: UNK
     Dates: start: 20050101
  5. YAZ [Suspect]
     Indication: CONTRACEPTION
     Dosage: UNK
     Route: 048
     Dates: start: 20060501, end: 20091027
  6. YAZ [Suspect]
     Indication: PREMENSTRUAL SYNDROME
  7. LEXAPRO [Concomitant]
     Indication: DEPRESSION
     Dosage: UNK
     Dates: start: 20050101
  8. SYNTHROID [Concomitant]
     Indication: HYPOTHYROIDISM
     Dosage: UNK
  9. ZOCOR [Concomitant]
     Indication: HYPERCHOLESTEROLAEMIA
     Dosage: UNK
     Dates: start: 20050101
  10. YASMIN [Suspect]
     Indication: CONTRACEPTION
     Dosage: UNK
     Route: 048
     Dates: start: 20050501, end: 20060501

REACTIONS (9)
  - PAIN IN EXTREMITY [None]
  - DYSPNOEA [None]
  - NERVOUSNESS [None]
  - PULMONARY EMBOLISM [None]
  - OEDEMA PERIPHERAL [None]
  - ARTHRALGIA [None]
  - DEEP VEIN THROMBOSIS [None]
  - FATIGUE [None]
  - ANXIETY [None]
